FAERS Safety Report 6282901-5 (Version None)
Quarter: 2009Q3

REPORT INFORMATION
  Report Type: 
  Country: None (occurrence: None)
  Receive Date: 20090722
  Receipt Date: 20090722
  Transmission Date: 20100115
  Serious: No
  Sender: FDA-Public Use
  Company Number: None

PATIENT

DRUGS (3)
  1. DIGOXIN [Suspect]
  2. DIGOXIN [Suspect]
  3. DIGOXIN [Suspect]

REACTIONS (1)
  - PRODUCT CONTAINER SEAL ISSUE [None]
